FAERS Safety Report 9177635 (Version 2)
Quarter: 2013Q2

REPORT INFORMATION
  Report Type: Spontaneous
  Country: US (occurrence: US)
  Receive Date: 20130321
  Receipt Date: 20130513
  Transmission Date: 20140414
  Serious: Yes (Death, Other)
  Sender: FDA-Public Use
  Company Number: US-PFIZER INC-2013092818

PATIENT
  Age: 53 Year
  Sex: Male

DRUGS (4)
  1. CHANTIX [Suspect]
     Dosage: STARTING PACK
     Dates: start: 20090109
  2. CHANTIX [Suspect]
     Dosage: CONTINUING PACK
     Dates: start: 20090202
  3. CHANTIX [Suspect]
     Dosage: UNK
     Dates: start: 20110101, end: 20110201
  4. CHANTIX [Suspect]
     Dosage: CONTINUING PACK
     Dates: start: 20110128

REACTIONS (1)
  - Completed suicide [Fatal]
